FAERS Safety Report 16091701 (Version 2)
Quarter: 2019Q2

REPORT INFORMATION
  Report Type: Spontaneous
  Country: US (occurrence: US)
  Receive Date: 20190319
  Receipt Date: 20190412
  Transmission Date: 20190711
  Serious: Yes (Other)
  Sender: FDA-Public Use
  Company Number: US-PURDUE-USA-2019-0146471

PATIENT
  Sex: Female
  Weight: 53.61 kg

DRUGS (4)
  1. DULOXETINE. [Concomitant]
     Active Substance: DULOXETINE
     Indication: BACK PAIN
     Dosage: 20 MG, DAILY
     Route: 048
     Dates: start: 20190214
  2. LYRICA [Concomitant]
     Active Substance: PREGABALIN
     Indication: ARACHNOIDITIS
     Dosage: 50 MG, BID
     Route: 048
     Dates: start: 201810
  3. OXYCODONE HYDROCHLORIDE (SIMILAR TO NDA 22-272) [Suspect]
     Active Substance: OXYCODONE HYDROCHLORIDE
     Indication: BACK PAIN
     Dosage: 40 MG, DAILY
     Route: 048
     Dates: start: 2014
  4. OXYCODONE HYDROCHLORIDE (SIMILAR TO NDA 22-272) [Suspect]
     Active Substance: OXYCODONE HYDROCHLORIDE
     Dosage: 15 MG, DAILY
     Route: 048

REACTIONS (3)
  - Medical device implantation [Unknown]
  - Drug ineffective [Unknown]
  - Headache [Unknown]
